FAERS Safety Report 9983828 (Version 1)
Quarter: 2014Q1

REPORT INFORMATION
  Report Type: Spontaneous
  Country: US (occurrence: US)
  Receive Date: 20140307
  Receipt Date: 20140307
  Transmission Date: 20141002
  Serious: No
  Sender: FDA-Public Use
  Company Number: US-BAXTER-2014BAX009954

PATIENT
  Age: 76 Year
  Sex: Female

DRUGS (1)
  1. DIANEAL LOW CALCIUM [Suspect]
     Indication: PERITONEAL DIALYSIS
     Route: 033
     Dates: start: 20131220

REACTIONS (7)
  - Cardiac discomfort [Recovered/Resolved]
  - Bloody peritoneal effluent [Recovered/Resolved]
  - Arthralgia [Recovered/Resolved]
  - Peritoneal dialysis complication [Unknown]
  - Abdominal distension [Unknown]
  - Procedural pain [Recovered/Resolved]
  - Abdominal pain [Unknown]
